FAERS Safety Report 22368837 (Version 1)
Quarter: 2023Q2

REPORT INFORMATION
  Report Type: Spontaneous
  Country: NL (occurrence: NL)
  Receive Date: 20230525
  Receipt Date: 20230525
  Transmission Date: 20230722
  Serious: Yes (Hospitalization, Other)
  Sender: FDA-Public Use
  Company Number: NL-FreseniusKabi-FK202307192

PATIENT
  Age: 24 Day
  Sex: Male

DRUGS (4)
  1. SODIUM CHLORIDE [Suspect]
     Active Substance: SODIUM CHLORIDE
     Indication: Faecaloma
     Dosage: MEDIAN VOLUME OF 150ML (RANGING BETWEEN 90 AND 280ML)
     Route: 054
  2. SODIUM CHLORIDE [Suspect]
     Active Substance: SODIUM CHLORIDE
     Indication: Enterocolitis
  3. CEFTRIAXONE [Concomitant]
     Active Substance: CEFTRIAXONE
     Indication: Enterocolitis
  4. METRONIDAZOLE [Concomitant]
     Active Substance: METRONIDAZOLE
     Indication: Enterocolitis

REACTIONS (3)
  - Acidosis hyperchloraemic [Recovered/Resolved]
  - Respiratory failure [Recovered/Resolved]
  - Cardiovascular insufficiency [Recovered/Resolved]
